FAERS Safety Report 11732397 (Version 1)
Quarter: 2015Q4

REPORT INFORMATION
  Report Type: Spontaneous
  Country: PL (occurrence: PL)
  Receive Date: 20151113
  Receipt Date: 20151113
  Transmission Date: 20160304
  Serious: Yes (Hospitalization, Other)
  Sender: FDA-Public Use
  Company Number: PHHY2015PL145104

PATIENT
  Age: 38 Year
  Sex: Female

DRUGS (9)
  1. METRONIDAZOLE. [Suspect]
     Active Substance: METRONIDAZOLE
     Indication: PERITONITIS
     Dosage: 500 MG, TID
     Route: 042
  2. CEFUROXIME. [Suspect]
     Active Substance: CEFUROXIME
     Indication: INFLAMMATION
  3. MESALAZINUM [Suspect]
     Active Substance: MESALAMINE
     Indication: PERITONITIS
     Dosage: 1500 MG, BID
  4. CEFUROXIME. [Suspect]
     Active Substance: CEFUROXIME
     Indication: CROHN^S DISEASE
  5. METRONIDAZOLE. [Suspect]
     Active Substance: METRONIDAZOLE
     Indication: INFLAMMATION
  6. MESALAZINUM [Suspect]
     Active Substance: MESALAMINE
     Indication: INFLAMMATION
  7. CEFUROXIME. [Suspect]
     Active Substance: CEFUROXIME
     Indication: PERITONITIS
     Dosage: 1500 MG, TID
     Route: 042
  8. MESALAZINUM [Suspect]
     Active Substance: MESALAMINE
     Indication: CROHN^S DISEASE
  9. METRONIDAZOLE. [Suspect]
     Active Substance: METRONIDAZOLE
     Indication: CROHN^S DISEASE

REACTIONS (10)
  - Thrombosis [Recovering/Resolving]
  - Arthralgia [Unknown]
  - Pulmonary thrombosis [None]
  - Chest pain [Unknown]
  - Pyrexia [Unknown]
  - Diarrhoea [Unknown]
  - Peripheral swelling [Unknown]
  - Joint swelling [None]
  - Purpura [Unknown]
  - Vomiting [Unknown]
